FAERS Safety Report 10071366 (Version 1)
Quarter: 2014Q2

REPORT INFORMATION
  Report Type: Spontaneous
  Country: JP (occurrence: JP)
  Receive Date: 20140410
  Receipt Date: 20140410
  Transmission Date: 20141212
  Serious: Yes (Other)
  Sender: FDA-Public Use
  Company Number: JP-ACTAVIS-2014-06719

PATIENT
  Age: 84 Year
  Sex: Female

DRUGS (2)
  1. GEMCITABINE (UNKNOWN) [Suspect]
     Indication: BILE DUCT CANCER STAGE IV
     Dosage: 1000 MG/ M2 AT 1, 8, AND 15 DAYS - THREE CYCLES OVER 3 MONTHS
     Route: 065
  2. PIPERACILLIN AND TAZOBACTAM [Concomitant]
     Indication: PNEUMONIA
     Dosage: 13.5 G, DAILY

REACTIONS (1)
  - Granulocytopenia [Recovered/Resolved]
